FAERS Safety Report 5137476-0 (Version None)
Quarter: 2006Q4

REPORT INFORMATION
  Report Type: 
  Country: None (occurrence: None)
  Receive Date: 20061030
  Receipt Date: 20051107
  Transmission Date: 20070319
  Serious: No
  Sender: FDA-Public Use
  Company Number: US-GLAXOSMITHKLINE-A0581496A

PATIENT
  Sex: Male

DRUGS (2)
  1. ADVAIR HFA [Suspect]
     Indication: DRUG USE FOR UNKNOWN INDICATION
     Route: 055
  2. FLONASE [Suspect]
     Indication: DRUG USE FOR UNKNOWN INDICATION
     Route: 045

REACTIONS (2)
  - EPISTAXIS [None]
  - HEART RATE IRREGULAR [None]
